FAERS Safety Report 15437190 (Version 1)
Quarter: 2018Q3

REPORT INFORMATION
  Report Type: Report from Study
  Country: US (occurrence: US)
  Receive Date: 20180927
  Receipt Date: 20180927
  Transmission Date: 20181010
  Serious: Yes (Other)
  Sender: FDA-Public Use
  Company Number: US-CLOVIS ONCOLOGY-CLO-2018-000747

PATIENT
  Age: 61 Year
  Sex: Female

DRUGS (2)
  1. AMITRIPTYLINE [Suspect]
     Active Substance: AMITRIPTYLINE
     Indication: NEUROPATHY PERIPHERAL
     Dosage: UNK
     Dates: start: 2018, end: 2018
  2. RUBRACA [Suspect]
     Active Substance: RUCAPARIB CAMSYLATE
     Indication: OVARIAN CANCER
     Dosage: 600 MG, BID
     Route: 048
     Dates: start: 20180619

REACTIONS (17)
  - Blood creatinine increased [Not Recovered/Not Resolved]
  - Insomnia [Recovered/Resolved]
  - Carbohydrate antigen 125 increased [Recovering/Resolving]
  - Nodule [Unknown]
  - Abdominal pain upper [Recovered/Resolved]
  - Fatigue [Recovering/Resolving]
  - Vomiting [Recovering/Resolving]
  - Nausea [Recovered/Resolved]
  - Skin burning sensation [Not Recovered/Not Resolved]
  - Constipation [Recovering/Resolving]
  - Vomiting [Recovered/Resolved]
  - Nausea [Not Recovered/Not Resolved]
  - Drug dose omission [Unknown]
  - Red blood cell count decreased [Recovering/Resolving]
  - Dyskinesia [Recovered/Resolved]
  - Erythema [Not Recovered/Not Resolved]
  - Dysgeusia [Not Recovered/Not Resolved]

NARRATIVE: CASE EVENT DATE: 2018
